FAERS Safety Report 25612707 (Version 2)
Quarter: 2025Q3

REPORT INFORMATION
  Report Type: Spontaneous
  Country: EU (occurrence: EU)
  Receive Date: 20250728
  Receipt Date: 20250808
  Transmission Date: 20251020
  Serious: Yes (Life-Threatening, Hospitalization, Other)
  Sender: ROCHE
  Company Number: None

PATIENT
  Age: 51 Year
  Sex: Female

DRUGS (1)
  1. OCREVUS [Suspect]
     Active Substance: OCRELIZUMAB
     Indication: Multiple sclerosis
     Route: 042
     Dates: end: 20250130

REACTIONS (4)
  - Pneumonitis [Recovered/Resolved]
  - Respiratory failure [Recovered/Resolved]
  - Colitis ischaemic [Recovered/Resolved]
  - Rectal neoplasm [Not Recovered/Not Resolved]

NARRATIVE: CASE EVENT DATE: 20250608
